FAERS Safety Report 8997350 (Version 1)
Quarter: 2013Q1

REPORT INFORMATION
  Report Type: Spontaneous
  Country: MX (occurrence: MX)
  Receive Date: 20130104
  Receipt Date: 20130104
  Transmission Date: 20140127
  Serious: Yes (Death)
  Sender: FDA-Public Use
  Company Number: MX-JNJFOC-20130100957

PATIENT
  Age: 89 Year
  Sex: Male
  Weight: 68 kg

DRUGS (9)
  1. XARELTO [Suspect]
     Indication: ATRIAL FIBRILLATION
     Route: 048
     Dates: start: 201211
  2. XARELTO [Suspect]
     Indication: CEREBROVASCULAR ACCIDENT PROPHYLAXIS
     Route: 048
     Dates: start: 201211
  3. VALSARTAN [Concomitant]
     Indication: HYPERTENSION
     Route: 065
  4. SERTRALINE [Concomitant]
     Indication: DEPRESSION
     Route: 048
     Dates: start: 201211
  5. MEMANTINE [Concomitant]
     Indication: DEMENTIA ALZHEIMER^S TYPE
     Route: 065
  6. HALOPERIDOL [Concomitant]
     Indication: DEMENTIA
     Route: 065
  7. CLONAZEPAM [Concomitant]
     Indication: DEMENTIA
     Route: 065
  8. DIGOXIN [Concomitant]
     Indication: ATRIAL FIBRILLATION
     Route: 065
     Dates: start: 2006
  9. FLUOXETINE [Concomitant]
     Indication: DEPRESSION
     Route: 065
     Dates: start: 201211

REACTIONS (1)
  - Asphyxia [Fatal]
